FAERS Safety Report 16779870 (Version 1)
Quarter: 2019Q3

REPORT INFORMATION
  Report Type: Spontaneous
  Country: PK (occurrence: PK)
  Receive Date: 20190906
  Receipt Date: 20190906
  Transmission Date: 20191005
  Serious: Yes (Death, Other)
  Sender: FDA-Public Use
  Company Number: PK-KADMON PHARMACEUTICALS, LLC-KAD201908-000594

PATIENT
  Age: 71 Year
  Sex: Male

DRUGS (3)
  1. DACLATASVIR. [Suspect]
     Active Substance: DACLATASVIR
     Indication: HEPATITIS C
     Dosage: 90 MG
  2. SOFOSBUVIR [Suspect]
     Active Substance: SOFOSBUVIR
     Indication: HEPATITIS C
     Dosage: 400 MG
  3. RIBAVIRIN. [Suspect]
     Active Substance: RIBAVIRIN
     Indication: HEPATITIS C
     Dosage: 600 MG

REACTIONS (3)
  - Ascites [Fatal]
  - Hepatic cirrhosis [Fatal]
  - Therapeutic product effect incomplete [Unknown]
